FAERS Safety Report 13105187 (Version 1)
Quarter: 2017Q1

REPORT INFORMATION
  Report Type: Report from Study
  Country: PT (occurrence: DE)
  Receive Date: 20170111
  Receipt Date: 20170111
  Transmission Date: 20170428
  Serious: Yes (Death)
  Sender: FDA-Public Use
  Company Number: PT-SUNOVION-2017SUN000096

PATIENT

DRUGS (13)
  1. LEVETIRACETAM. [Concomitant]
     Active Substance: LEVETIRACETAM
     Dosage: 4000 MG, DAILY
     Route: 048
     Dates: start: 20100925, end: 20161124
  2. FUROSEMID                          /00032601/ [Concomitant]
     Active Substance: FUROSEMIDE
     Dosage: 20 MG, DAILY
     Route: 048
     Dates: start: 201010, end: 201701
  3. INSULIN [Concomitant]
     Active Substance: INSULIN NOS
     Dosage: 18 IU, DAILY
     Route: 058
     Dates: start: 20111021, end: 201701
  4. LEVETIRACETAM. [Concomitant]
     Active Substance: LEVETIRACETAM
     Dosage: 3000 MG, DAILY
     Route: 048
     Dates: start: 20161203, end: 20161212
  5. LEVETIRACETAM. [Concomitant]
     Active Substance: LEVETIRACETAM
     Dosage: 2500 MG, DAILY
     Route: 048
     Dates: start: 20161213, end: 20161214
  6. LEVETIRACETAM. [Concomitant]
     Active Substance: LEVETIRACETAM
     Dosage: 2000 MG, DAILY
     Route: 048
     Dates: start: 20161215, end: 201701
  7. CALCILAC                           /00751524/ [Concomitant]
     Dosage: 500 MG/400 IU, DAILY
     Route: 048
     Dates: start: 2009, end: 201701
  8. ZEBINIX [Suspect]
     Active Substance: ESLICARBAZEPINE ACETATE
     Dosage: 800 MG, DAILY
     Route: 048
     Dates: start: 20161213, end: 201701
  9. ZEBINIX [Suspect]
     Active Substance: ESLICARBAZEPINE ACETATE
     Indication: EPILEPSY
     Dosage: 400 MG, DAILY
     Route: 048
     Dates: start: 20161122, end: 20161212
  10. LEVETIRACETAM. [Concomitant]
     Active Substance: LEVETIRACETAM
     Dosage: 3500 MG, DAILY
     Route: 048
     Dates: start: 20161125, end: 20161202
  11. RAMIPRIL. [Concomitant]
     Active Substance: RAMIPRIL
     Dosage: 5 MG, DAILY
     Route: 048
     Dates: start: 201010, end: 201701
  12. BISOPROLOL [Concomitant]
     Active Substance: BISOPROLOL
     Dosage: 20 MG, DAILY
     Route: 048
     Dates: start: 201010, end: 201701
  13. ASPIRIN. [Concomitant]
     Active Substance: ASPIRIN
     Dosage: 100 MG, DAILY
     Route: 048
     Dates: start: 201010, end: 201701

REACTIONS (1)
  - Death [Fatal]

NARRATIVE: CASE EVENT DATE: 20170103
